FAERS Safety Report 6364365-6 (Version None)
Quarter: 2009Q3

REPORT INFORMATION
  Report Type: 
  Country: None (occurrence: None)
  Receive Date: 20090919
  Receipt Date: 20090716
  Transmission Date: 20100115
  Serious: No
  Sender: FDA-Public Use
  Company Number: US-ABBOTT-09P-163-0586341-00

PATIENT
  Sex: Female
  Weight: 65.83 kg

DRUGS (8)
  1. HUMIRA [Suspect]
     Indication: CROHN'S DISEASE
     Route: 058
     Dates: start: 20090226, end: 20090618
  2. ASACOL [Concomitant]
     Indication: CROHN'S DISEASE
     Route: 048
  3. ACIPHEX [Concomitant]
     Indication: GASTROOESOPHAGEAL REFLUX DISEASE
     Route: 048
  4. REGLAN [Concomitant]
     Indication: GASTROOESOPHAGEAL REFLUX DISEASE
     Route: 048
  5. VIT B12 [Concomitant]
     Indication: VITAMIN SUPPLEMENTATION
     Route: 030
  6. LOMOTIL [Concomitant]
     Indication: CROHN'S DISEASE
     Route: 048
  7. DARVOCET-N 100 [Concomitant]
     Indication: CROHN'S DISEASE
     Route: 048
  8. BELLADONNA [Concomitant]
     Indication: DRUG USE FOR UNKNOWN INDICATION

REACTIONS (2)
  - CROHN'S DISEASE [None]
  - HERPES ZOSTER [None]
